FAERS Safety Report 7161799-7 (Version None)
Quarter: 2010Q4

REPORT INFORMATION
  Report Type: 
  Country: None (occurrence: None)
  Receive Date: 20101201
  Receipt Date: 20101122
  Transmission Date: 20110411
  Serious: Yes (Other)
  Sender: FDA-Public Use
  Company Number: 2010-3211

PATIENT
  Age: 77 Year
  Sex: Female

DRUGS (3)
  1. SOMATULINE LP 30MG (SOMATULINE SR) (LANREOTIDE) (LANREOTIDE ACETATE) [Suspect]
     Indication: CARCINOID TUMOUR OF THE SMALL BOWEL
     Dosage: 30 MG (30 MG, INTRAMUSCULAR
     Route: 030
     Dates: start: 20080201
  2. PROTELOS (STRONTIUM RANELATE) [Concomitant]
  3. DURAGESIC-100 [Concomitant]

REACTIONS (2)
  - METASTASES TO SPINE [None]
  - MYALGIA [None]
